FAERS Safety Report 23680992 (Version 1)
Quarter: 2024Q1

REPORT INFORMATION
  Report Type: Spontaneous
  Country: JP (occurrence: JP)
  Receive Date: 20240328
  Receipt Date: 20240328
  Transmission Date: 20240409
  Serious: Yes (Other)
  Sender: FDA-Public Use
  Company Number: JP-NBI-BS202400056

PATIENT
  Age: 81 Year
  Sex: Male

DRUGS (3)
  1. IDARUCIZUMAB [Suspect]
     Active Substance: IDARUCIZUMAB
     Indication: Procoagulant therapy
     Route: 042
  2. IDARUCIZUMAB [Suspect]
     Active Substance: IDARUCIZUMAB
     Route: 042
  3. IDARUCIZUMAB [Suspect]
     Active Substance: IDARUCIZUMAB
     Route: 042

REACTIONS (1)
  - Drug ineffective [Unknown]
